FAERS Safety Report 6837492-4 (Version None)
Quarter: 2010Q3

REPORT INFORMATION
  Report Type: 
  Country: None (occurrence: None)
  Receive Date: 20100713
  Receipt Date: 20070514
  Transmission Date: 20110219
  Serious: No
  Sender: FDA-Public Use
  Company Number: US-PFIZER INC-2007040040

PATIENT
  Sex: Female
  Weight: 60.454 kg

DRUGS (5)
  1. CHANTIX [Suspect]
     Indication: SMOKING CESSATION THERAPY
     Dates: start: 20070423
  2. ALL OTHER THERAPEUTIC PRODUCTS [Concomitant]
  3. ALLERGY MEDICATION [Concomitant]
  4. BUSPAR [Concomitant]
     Indication: NERVOUS SYSTEM DISORDER
  5. VALIUM [Concomitant]
     Indication: NERVOUS SYSTEM DISORDER

REACTIONS (4)
  - ABNORMAL DREAMS [None]
  - FUNGAL INFECTION [None]
  - POLYDIPSIA [None]
  - SLEEP DISORDER [None]
